FAERS Safety Report 6396187-4 (Version None)
Quarter: 2009Q4

REPORT INFORMATION
  Report Type: 
  Country: None (occurrence: None)
  Receive Date: 20091011
  Receipt Date: 20090929
  Transmission Date: 20100525
  Serious: Yes (Other)
  Sender: FDA-Public Use
  Company Number: PHEH2009US05281

PATIENT
  Sex: Female

DRUGS (9)
  1. TASIGNA [Suspect]
     Dosage: 400 MG, BID
     Route: 048
     Dates: start: 20090429
  2. ADVAIR DISKUS 100/50 [Concomitant]
     Dosage: UNK
  3. FLUTICASONE PROPIONATE [Concomitant]
     Dosage: 50 MG, UNK
  4. SINGULAIR [Concomitant]
     Dosage: 10 MG, UNK
  5. PREVACID [Concomitant]
     Dosage: 30 MG, UNK
  6. KLOR-CON [Concomitant]
     Dosage: 10 MEQ, UNK
  7. FUROSEMIDE [Concomitant]
     Dosage: 40 MG, UNK
  8. BONIVA [Concomitant]
     Dosage: 150 MG, UNK
  9. TIZANIDINE HCL [Concomitant]
     Dosage: 2 MG, UNK

REACTIONS (5)
  - BURNING SENSATION [None]
  - EXCESSIVE EYE BLINKING [None]
  - MALIGNANT NEOPLASM PROGRESSION [None]
  - PRURITUS [None]
  - RASH GENERALISED [None]
